FAERS Safety Report 7240448-3 (Version None)
Quarter: 2011Q1

REPORT INFORMATION
  Report Type: 
  Country: None (occurrence: None)
  Receive Date: 20110124
  Receipt Date: 20110119
  Transmission Date: 20110831
  Serious: No
  Sender: FDA-Public Use
  Company Number: US-PFIZER INC-2011013471

PATIENT
  Sex: Female

DRUGS (1)
  1. CHANTIX [Suspect]
     Indication: SMOKING CESSATION THERAPY
     Dosage: UNK; TWICE DAILY
     Route: 048

REACTIONS (5)
  - FEELING ABNORMAL [None]
  - ABNORMAL DREAMS [None]
  - VOMITING [None]
  - NIGHTMARE [None]
  - INSOMNIA [None]
